FAERS Safety Report 9605524 (Version 1)
Quarter: 2013Q4

REPORT INFORMATION
  Report Type: Spontaneous
  Country: FR (occurrence: FR)
  Receive Date: 20131008
  Receipt Date: 20131008
  Transmission Date: 20140711
  Serious: Yes (Hospitalization, Other)
  Sender: FDA-Public Use
  Company Number: FR-ASTRAZENECA-2013SE73781

PATIENT
  Age: 970 Week
  Sex: Female

DRUGS (10)
  1. INEXIUM [Suspect]
     Route: 048
     Dates: start: 20130715
  2. EUPANTOL [Suspect]
     Route: 042
     Dates: start: 20130827, end: 201308
  3. EUPANTOL [Suspect]
     Route: 048
     Dates: start: 201308, end: 20130901
  4. OXYNORMORO [Concomitant]
     Route: 048
     Dates: start: 20130827, end: 20130901
  5. STILNOX [Concomitant]
     Route: 048
     Dates: start: 20130827, end: 20130901
  6. ORFADIN [Concomitant]
     Indication: TYROSINAEMIA
     Route: 048
  7. OXYCONTIN SR [Concomitant]
     Route: 048
     Dates: start: 20130827, end: 20130901
  8. SPASFON [Concomitant]
     Route: 042
     Dates: start: 20130827, end: 20130901
  9. SPASFON [Concomitant]
     Route: 048
     Dates: start: 20130827, end: 20130901
  10. GAVISCON [Concomitant]
     Dosage: 4 TO 5 DF/D
     Route: 048
     Dates: start: 20130829, end: 20130901

REACTIONS (7)
  - Inappropriate antidiuretic hormone secretion [Recovered/Resolved]
  - Convulsion [Recovered/Resolved]
  - Hepatic failure [Unknown]
  - Treatment noncompliance [Unknown]
  - Heart rate increased [Unknown]
  - Abdominal pain upper [Unknown]
  - Vomiting [Unknown]
